FAERS Safety Report 18151586 (Version 3)
Quarter: 2020Q4

REPORT INFORMATION
  Report Type: Report from Study
  Country: US (occurrence: US)
  Receive Date: 20200814
  Receipt Date: 20201013
  Transmission Date: 20210113
  Serious: Yes (Death, Other)
  Sender: FDA-Public Use
  Company Number: US-EXELIXIS-XL18420031897

PATIENT
  Age: 59 Year
  Sex: Female
  Weight: 56.69 kg

DRUGS (9)
  1. ZOFRAN [Concomitant]
     Active Substance: ONDANSETRON HYDROCHLORIDE
  2. OXYCODONE [Concomitant]
     Active Substance: OXYCODONE
  3. ATEZOLIZUMAB. [Suspect]
     Active Substance: ATEZOLIZUMAB
     Indication: NON-SMALL CELL LUNG CANCER
     Dosage: 1200 MG, QD
     Route: 042
     Dates: start: 20190419, end: 20200723
  4. PROTONIX [Concomitant]
     Active Substance: PANTOPRAZOLE SODIUM
  5. MAGNESIUM [Concomitant]
     Active Substance: MAGNESIUM
  6. TESSALON [Concomitant]
     Active Substance: BENZONATATE
  7. XL184 [Suspect]
     Active Substance: CABOZANTINIB
     Indication: NON-SMALL CELL LUNG CANCER
     Dosage: 40 MG, QD
     Route: 048
     Dates: start: 20190419, end: 20200723
  8. NALOXONE [Concomitant]
     Active Substance: NALOXONE
  9. AMLODIPINE [Concomitant]
     Active Substance: AMLODIPINE BESYLATE

REACTIONS (2)
  - Septic shock [Fatal]
  - Large intestine perforation [Unknown]

NARRATIVE: CASE EVENT DATE: 20200728
